FAERS Safety Report 7637799-7 (Version None)
Quarter: 2011Q3

REPORT INFORMATION
  Report Type: 
  Country: None (occurrence: None)
  Receive Date: 20110727
  Receipt Date: 20110721
  Transmission Date: 20111222
  Serious: Yes (Death, Disabling, Other)
  Sender: FDA-Public Use
  Company Number: CELGENEUS-087-21880-11011203

PATIENT
  Sex: Male

DRUGS (24)
  1. REVLIMID [Suspect]
     Indication: MULTIPLE MYELOMA
     Dosage: 25 MILLIGRAM
     Route: 048
     Dates: start: 20101018, end: 20101107
  2. DEXAMETHASONE [Suspect]
     Dosage: 40 MILLIGRAM
     Route: 048
     Dates: start: 20101123, end: 20101126
  3. AZUNOL [Concomitant]
     Indication: PROPHYLAXIS
     Dosage: 5-7 DROPS
     Route: 048
     Dates: start: 20100329, end: 20101224
  4. ASPIRIN [Concomitant]
     Indication: PROPHYLAXIS
     Dosage: 100 MILLIGRAM
     Route: 048
     Dates: start: 20101202, end: 20101224
  5. DEXAMETHASONE [Suspect]
     Indication: MULTIPLE MYELOMA
     Dosage: 40 MILLIGRAM
     Route: 048
     Dates: start: 20101018, end: 20101021
  6. ITRACONAZOLE [Concomitant]
     Indication: PROPHYLAXIS
     Dosage: 100 MILLIGRAM
     Route: 048
     Dates: start: 20101116, end: 20101224
  7. REVLIMID [Suspect]
     Dosage: 25 MILLIGRAM
     Route: 048
     Dates: start: 20101115, end: 20101205
  8. DEXAMETHASONE [Suspect]
     Dosage: 40 MILLIGRAM
     Route: 048
     Dates: start: 20101221, end: 20101222
  9. REVLIMID [Suspect]
     Dosage: 25 MILLIGRAM
     Route: 048
     Dates: start: 20101213, end: 20101222
  10. DEXAMETHASONE [Suspect]
     Dosage: 40 MILLIGRAM
     Route: 048
     Dates: start: 20101115, end: 20101118
  11. ENSURE [Concomitant]
     Indication: PROPHYLAXIS
     Dosage: 3 CANS
     Route: 048
     Dates: start: 20100410, end: 20101224
  12. DEXAMETHASONE [Suspect]
     Dosage: 40 MILLIGRAM
     Route: 048
     Dates: start: 20101026, end: 20101029
  13. DEXAMETHASONE [Suspect]
     Dosage: 40 MILLIGRAM
     Route: 048
     Dates: start: 20101213, end: 20101216
  14. PURSENNID [Concomitant]
     Dosage: 12 MILLIGRAM
     Route: 048
     Dates: start: 20070731, end: 20101114
  15. KADIAN [Concomitant]
     Dosage: 20 MILLIGRAM
     Route: 048
     Dates: start: 20070727, end: 20101021
  16. LEVOFLOXACIN [Concomitant]
     Indication: PROPHYLAXIS
     Dosage: 500 MILLIGRAM
     Route: 048
     Dates: start: 20101116, end: 20101130
  17. SULFAMETHOXAZOLE [Concomitant]
     Indication: PROPHYLAXIS
     Route: 048
     Dates: start: 20101116, end: 20101224
  18. BUP-4 [Concomitant]
     Dosage: 20 MILLIGRAM
     Route: 048
     Dates: start: 20100311, end: 20101224
  19. DEXAMETHASONE [Suspect]
     Dosage: 40 MILLIGRAM
     Route: 048
     Dates: start: 20101201, end: 20101204
  20. MAGNESIUM SULFATE [Concomitant]
     Dosage: 1980 MILLIGRAM
     Route: 048
     Dates: start: 20100119, end: 20101114
  21. DEXAMETHASONE [Suspect]
     Dosage: 40 MILLIGRAM
     Route: 048
     Dates: start: 20101103, end: 20101106
  22. HARNAL D [Concomitant]
     Dosage: .2 MILLIGRAM
     Route: 048
     Dates: start: 20100311, end: 20101224
  23. FAMOTIDINE [Concomitant]
     Indication: PROPHYLAXIS
     Dosage: 20 MILLIGRAM
     Route: 048
     Dates: start: 20091226, end: 20101224
  24. FRANDOL [Concomitant]
     Dosage: 40 MILLIGRAM
     Route: 062
     Dates: start: 20091217, end: 20101224

REACTIONS (8)
  - DECREASED APPETITE [None]
  - ENTEROCOLITIS INFECTIOUS [None]
  - NEUTROPENIA [None]
  - INFECTION [None]
  - DIARRHOEA INFECTIOUS [None]
  - NEUTROPHIL COUNT DECREASED [None]
  - WHITE BLOOD CELL COUNT INCREASED [None]
  - PLATELET COUNT DECREASED [None]
